FAERS Safety Report 9114143 (Version 2)
Quarter: 2013Q1

REPORT INFORMATION
  Report Type: Report from Study
  Country: IT (occurrence: IT)
  Receive Date: 20130208
  Receipt Date: 20130227
  Transmission Date: 20140127
  Serious: Yes (Death)
  Sender: FDA-Public Use
  Company Number: IT-ROCHE-1185094

PATIENT
  Age: 68 Year
  Sex: Female

DRUGS (2)
  1. AVASTIN [Suspect]
     Indication: BREAST CANCER
     Route: 042
     Dates: start: 20121002, end: 20121211
  2. PACLITAXEL [Concomitant]
     Route: 042
     Dates: start: 20121002, end: 20121218

REACTIONS (3)
  - Interstitial lung disease [Fatal]
  - Shock haemorrhagic [Fatal]
  - Septic shock [Fatal]
